FAERS Safety Report 6713707-8 (Version None)
Quarter: 2010Q2

REPORT INFORMATION
  Report Type: 
  Country: None (occurrence: None)
  Receive Date: 20100506
  Receipt Date: 20100426
  Transmission Date: 20101027
  Serious: Yes (Life-Threatening)
  Sender: FDA-Public Use
  Company Number: FR-PFIZER INC-2010052139

PATIENT
  Age: 74 Year
  Sex: Female
  Weight: 70 kg

DRUGS (14)
  1. CLINDAMYCIN HCL [Suspect]
     Indication: ANTIBIOTIC PROPHYLAXIS
     Dosage: 600 MG, SINGLE
     Route: 042
     Dates: start: 20081209, end: 20081209
  2. DIPRIVAN [Suspect]
     Indication: INDUCTION OF ANAESTHESIA
     Dosage: 150 MG DAILY
     Route: 042
     Dates: start: 20081209, end: 20081209
  3. SUFENTA PRESERVATIVE FREE [Concomitant]
     Indication: INDUCTION OF ANAESTHESIA
     Dosage: 10UG + 5 UG AT INDUCTION
     Route: 042
     Dates: start: 20081209, end: 20081209
  4. SUFENTA PRESERVATIVE FREE [Concomitant]
     Dosage: 55 A?G
  5. TRACRIUM [Concomitant]
     Indication: INDUCTION OF ANAESTHESIA
     Dosage: 50MG AT INDUCTION
     Route: 042
     Dates: start: 20081209, end: 20081209
  6. TRACRIUM [Concomitant]
     Dosage: MAINTENANCE DOSE AT 70MG THEN 90MG
  7. NORFLOXACIN [Concomitant]
     Dosage: 400 MG, 2X/DAY
  8. DI-ANTALVIC [Concomitant]
  9. STRESAM [Concomitant]
     Dosage: 1 DF, 3X/DAY
  10. LEVOTHYROX [Concomitant]
  11. PRAVASTATIN SODIUM [Concomitant]
  12. ACTONEL [Concomitant]
  13. NEURONTIN [Concomitant]
     Indication: PREMEDICATION
     Dosage: UNK
     Dates: start: 20081208, end: 20081209
  14. LEXOMIL [Concomitant]
     Indication: PREMEDICATION
     Dosage: 0.5 DF, SINGLE
     Dates: start: 20081208, end: 20081208

REACTIONS (1)
  - CIRCULATORY COLLAPSE [None]
